FAERS Safety Report 22077546 (Version 1)
Quarter: 2023Q1

REPORT INFORMATION
  Report Type: Spontaneous
  Country: CA (occurrence: CA)
  Receive Date: 20230309
  Receipt Date: 20230309
  Transmission Date: 20230417
  Serious: Yes (Hospitalization)
  Sender: FDA-Public Use
  Company Number: CA-CELLTRION INC.-2021CA017931

PATIENT

DRUGS (7)
  1. INFLECTRA [Suspect]
     Active Substance: INFLIXIMAB-DYYB
     Indication: Ankylosing spondylitis
     Dosage: 655 MG WEEK 0, 2, 6 AND THEN EVERY 6 WEEKS
     Route: 042
     Dates: start: 20211015, end: 20211125
  2. INFLECTRA [Suspect]
     Active Substance: INFLIXIMAB-DYYB
     Dosage: 655 MG WEEK 0, 2, 6 AND THEN EVERY 6 WEEKS
     Route: 042
     Dates: start: 20211029
  3. INFLECTRA [Suspect]
     Active Substance: INFLIXIMAB-DYYB
     Dosage: 655 MG WEEK 0, 2, 6 AND THEN EVERY 6 WEEKS
     Route: 042
     Dates: start: 20211125
  4. INFLECTRA [Suspect]
     Active Substance: INFLIXIMAB-DYYB
     Dosage: 8 MG, EVERY 6 WEEK
     Route: 042
     Dates: start: 20220106
  5. INFLECTRA [Suspect]
     Active Substance: INFLIXIMAB-DYYB
     Dosage: 8 MG, EVERY 6 WEEK
     Route: 042
  6. INFLECTRA [Suspect]
     Active Substance: INFLIXIMAB-DYYB
     Dosage: 8 MG, EVERY 6 WEEK
     Route: 042
     Dates: start: 20220919
  7. INFLECTRA [Suspect]
     Active Substance: INFLIXIMAB-DYYB
     Dosage: 8 MG, EVERY 6 WEEK
     Route: 042
     Dates: start: 20230201

REACTIONS (5)
  - Illness [Not Recovered/Not Resolved]
  - Therapeutic response delayed [Unknown]
  - Mobility decreased [Unknown]
  - Headache [Recovered/Resolved]
  - Off label use [Unknown]

NARRATIVE: CASE EVENT DATE: 20210101
